FAERS Safety Report 25661351 (Version 1)
Quarter: 2025Q3

REPORT INFORMATION
  Report Type: Spontaneous
  Country: CN (occurrence: CN)
  Receive Date: 20250808
  Receipt Date: 20250808
  Transmission Date: 20251020
  Serious: Yes (Other)
  Sender: BEIGENE
  Company Number: CN-BEIGENE-BGN-2025-012846

PATIENT
  Age: 61 Year
  Weight: 51.5 kg

DRUGS (14)
  1. TISLELIZUMAB [Suspect]
     Active Substance: TISLELIZUMAB
     Indication: Oesophageal squamous cell carcinoma
     Route: 041
  2. TISLELIZUMAB [Suspect]
     Active Substance: TISLELIZUMAB
  3. TISLELIZUMAB [Suspect]
     Active Substance: TISLELIZUMAB
  4. TISLELIZUMAB [Suspect]
     Active Substance: TISLELIZUMAB
     Route: 041
  5. TISLELIZUMAB [Suspect]
     Active Substance: TISLELIZUMAB
     Route: 041
  6. TISLELIZUMAB [Suspect]
     Active Substance: TISLELIZUMAB
  7. TISLELIZUMAB [Suspect]
     Active Substance: TISLELIZUMAB
  8. TISLELIZUMAB [Suspect]
     Active Substance: TISLELIZUMAB
     Route: 041
  9. CISPLATIN [Concomitant]
     Active Substance: CISPLATIN
     Indication: Oesophageal squamous cell carcinoma
     Route: 041
  10. CISPLATIN [Concomitant]
     Active Substance: CISPLATIN
  11. PACLITAXEL [Concomitant]
     Active Substance: PACLITAXEL
     Indication: Oesophageal squamous cell carcinoma
     Route: 041
  12. PACLITAXEL [Concomitant]
     Active Substance: PACLITAXEL
  13. CETUXIMAB [Concomitant]
     Active Substance: CETUXIMAB
     Indication: Oesophageal squamous cell carcinoma
     Route: 041
  14. CETUXIMAB [Concomitant]
     Active Substance: CETUXIMAB

REACTIONS (6)
  - Flushing [Recovering/Resolving]
  - Conjunctival hyperaemia [Recovering/Resolving]
  - Dizziness [Recovering/Resolving]
  - Asthenia [Recovering/Resolving]
  - Oxygen saturation decreased [Recovered/Resolved]
  - Heart rate increased [Recovered/Resolved]
